FAERS Safety Report 25382849 (Version 1)
Quarter: 2025Q2

REPORT INFORMATION
  Report Type: Spontaneous
  Country: CH (occurrence: CH)
  Receive Date: 20250602
  Receipt Date: 20250602
  Transmission Date: 20250717
  Serious: Yes (Disabling)
  Sender: NOVO NORDISK
  Company Number: None

PATIENT
  Age: 60 Year
  Sex: Female

DRUGS (14)
  1. SODIUM PICOSULFATE [Concomitant]
     Active Substance: SODIUM PICOSULFATE
     Indication: Constipation
     Route: 048
  2. WEGOVY [Suspect]
     Active Substance: SEMAGLUTIDE
     Indication: Obesity
     Dosage: 2.4 MG, QW
     Route: 058
     Dates: start: 202408, end: 20250515
  3. PANTOPRAZOLE [Concomitant]
     Active Substance: PANTOPRAZOLE
     Indication: Dyspepsia
     Dosage: 40 MG, QD
     Route: 048
  4. ACETAMINOPHEN [Concomitant]
     Active Substance: ACETAMINOPHEN
     Indication: Pain
     Dosage: 1 G, QOD(LONG TERM)
     Route: 048
  5. PRIMPERAN [Concomitant]
     Active Substance: METOCLOPRAMIDE HYDROCHLORIDE
     Indication: Nausea
     Dosage: 10 MG, QOD(LONG TERM)
     Route: 048
  6. SIMVASTATIN [Concomitant]
     Active Substance: SIMVASTATIN
     Indication: Hypercholesterolaemia
     Dosage: 20 MG, QD(LONG TERM)
     Route: 048
  7. IRBESARTAN [Concomitant]
     Active Substance: IRBESARTAN
     Indication: Hypertension
     Dosage: 150 MG, QD(LONG TERM)
     Route: 048
  8. FOLIC ACID [Concomitant]
     Active Substance: FOLIC ACID
     Indication: Product used for unknown indication
     Dosage: 5 MG, QW(LONG TERM)
     Route: 048
  9. TRAZODONE [Concomitant]
     Active Substance: TRAZODONE HYDROCHLORIDE
     Indication: Insomnia
     Dosage: 100 MG, QD(LONG TERM)
     Route: 048
  10. ACETAMINOPHEN\TRAMADOL [Concomitant]
     Active Substance: ACETAMINOPHEN\TRAMADOL
     Indication: Pain
     Route: 048
  11. VITAMIN D3 [Concomitant]
     Active Substance: CHOLECALCIFEROL
     Indication: Product used for unknown indication
     Route: 048
  12. BUDESONIDE\FORMOTEROL FUMARATE DIHYDRATE [Concomitant]
     Active Substance: BUDESONIDE\FORMOTEROL FUMARATE DIHYDRATE
     Indication: Asthma
     Route: 055
  13. ACEMETACIN [Concomitant]
     Active Substance: ACEMETACIN
     Indication: Pain
     Dosage: 90 MG, QD(LONG TERM)
     Route: 048
  14. QUETIAPINE [Concomitant]
     Active Substance: QUETIAPINE
     Indication: Anxiety
     Dosage: 25 MG, QD(LONG TERM)
     Route: 048

REACTIONS (2)
  - Blindness [Not Recovered/Not Resolved]
  - Optic ischaemic neuropathy [Not Recovered/Not Resolved]

NARRATIVE: CASE EVENT DATE: 20250514
